FAERS Safety Report 19869897 (Version 6)
Quarter: 2022Q1

REPORT INFORMATION
  Report Type: Report from Study
  Country: US (occurrence: US)
  Receive Date: 20210923
  Receipt Date: 20220307
  Transmission Date: 20220423
  Serious: Yes (Other)
  Sender: FDA-Public Use
  Company Number: US-ABBVIE-21K-163-4054267-00

PATIENT
  Sex: Male

DRUGS (4)
  1. HUMIRA [Suspect]
     Active Substance: ADALIMUMAB
     Indication: Psoriatic arthropathy
     Dosage: CF
     Route: 058
     Dates: start: 20210728
  2. HUMIRA [Suspect]
     Active Substance: ADALIMUMAB
     Dosage: CF
     Route: 058
  3. MODERNA COVID-19 VACCINE [Concomitant]
     Active Substance: ELASOMERAN
     Indication: COVID-19 immunisation
     Dosage: 1ST DOSE
     Route: 030
     Dates: start: 20210122, end: 20210122
  4. MODERNA COVID-19 VACCINE [Concomitant]
     Active Substance: ELASOMERAN
     Dosage: 2ND DOSE
     Route: 030
     Dates: start: 20210225, end: 20210225

REACTIONS (15)
  - Meniscus injury [Unknown]
  - Meniscus injury [Unknown]
  - Post procedural haemorrhage [Recovering/Resolving]
  - Loss of personal independence in daily activities [Unknown]
  - Dysstasia [Unknown]
  - Grip strength decreased [Unknown]
  - Joint range of motion measurement [Unknown]
  - Haemophilia [Not Recovered/Not Resolved]
  - Procedural pain [Recovering/Resolving]
  - Post procedural contusion [Recovering/Resolving]
  - Joint stiffness [Recovering/Resolving]
  - Peripheral venous disease [Recovering/Resolving]
  - Post procedural complication [Recovering/Resolving]
  - Mobility decreased [Unknown]
  - Gait disturbance [Unknown]

NARRATIVE: CASE EVENT DATE: 20210101
